FAERS Safety Report 6785163-5 (Version None)
Quarter: 2010Q2

REPORT INFORMATION
  Report Type: 
  Country: None (occurrence: None)
  Receive Date: 20100618
  Receipt Date: 20100602
  Transmission Date: 20101027
  Serious: Yes (Death, Life-Threatening)
  Sender: FDA-Public Use
  Company Number: TOR 2010-0023

PATIENT
  Age: 65 Year
  Sex: Female

DRUGS (10)
  1. FARESTON [Suspect]
     Indication: BREAST CANCER RECURRENT
     Dosage: 120 MG, ORAL
     Route: 048
     Dates: start: 20080522, end: 20080530
  2. LASIX [Concomitant]
  3. ALDACTONE [Concomitant]
  4. MUCOSTA [Concomitant]
  5. TAKEPRON [Concomitant]
  6. GLYCYRON [Concomitant]
  7. STRONGER NEO-MINOPHAGEN C [Concomitant]
  8. AMOBAN [Concomitant]
  9. PIMPERAN [Concomitant]
  10. PENTOCILLIN [Concomitant]

REACTIONS (4)
  - BLOOD UREA INCREASED [None]
  - CONDITION AGGRAVATED [None]
  - HEPATIC FAILURE [None]
  - METASTASES TO LIVER [None]
